FAERS Safety Report 24070486 (Version 1)
Quarter: 2024Q3

REPORT INFORMATION
  Report Type: Report from Study
  Country: RO (occurrence: RO)
  Receive Date: 20240710
  Receipt Date: 20240710
  Transmission Date: 20241017
  Serious: No
  Sender: ROCHE
  Company Number: RO-ROCHE-3503230

PATIENT
  Age: 47 Year
  Sex: Female
  Weight: 56.0 kg

DRUGS (1)
  1. PHESGO [Suspect]
     Active Substance: HYALURONIDASE-ZZXF\PERTUZUMAB\TRASTUZUMAB
     Indication: Breast cancer
     Dosage: PHESGO 600MG/600MG
     Route: 058
     Dates: start: 202301

REACTIONS (2)
  - Memory impairment [Unknown]
  - Therapy cessation [Unknown]
